FAERS Safety Report 6099836-3 (Version None)
Quarter: 2009Q1

REPORT INFORMATION
  Report Type: 
  Country: None (occurrence: None)
  Receive Date: 20090303
  Receipt Date: 20090223
  Transmission Date: 20090719
  Serious: Yes (Hospitalization)
  Sender: FDA-Public Use
  Company Number: PHHY2009FR06748

PATIENT
  Age: 64 Year
  Sex: Male

DRUGS (2)
  1. ZOMETA [Suspect]
     Dosage: UNK
     Route: 042
     Dates: start: 20050101, end: 20070101
  2. SUTENT [Suspect]
     Dosage: UNK
     Route: 042
     Dates: start: 20071201, end: 20080205

REACTIONS (3)
  - ORAL INFECTION [None]
  - OSTEONECROSIS [None]
  - PAIN [None]
